FAERS Safety Report 5407140-9 (Version None)
Quarter: 2007Q3

REPORT INFORMATION
  Report Type: 
  Country: None (occurrence: None)
  Receive Date: 20070803
  Receipt Date: 20070803
  Transmission Date: 20080115
  Serious: Yes (Other)
  Sender: FDA-Public Use
  Company Number: None

PATIENT
  Age: 38 Year
  Sex: Male
  Weight: 86.1834 kg

DRUGS (5)
  1. ZYPREXA [Suspect]
     Indication: PRADER-WILLI SYNDROME
     Dosage: 1 TABLET/DAY
     Dates: start: 20070701
  2. LUVOX [Suspect]
     Dosage: 2 TAB/25 + 50 MG
     Dates: start: 20070701
  3. MULTI-VITAMIN [Concomitant]
  4. METAMUCIL [Concomitant]
  5. PERIDEX [Concomitant]

REACTIONS (3)
  - AGGRESSION [None]
  - HYPERHIDROSIS [None]
  - WEIGHT DECREASED [None]
